FAERS Safety Report 11029689 (Version 1)
Quarter: 2015Q2

REPORT INFORMATION
  Report Type: Spontaneous
  Country: IT (occurrence: IT)
  Receive Date: 20150415
  Receipt Date: 20150415
  Transmission Date: 20150821
  Serious: Yes (Other)
  Sender: FDA-Public Use
  Company Number: IT-ACCORD-030043

PATIENT
  Sex: Male

DRUGS (11)
  1. VINORELBINE [Suspect]
     Active Substance: VINORELBINE\VINORELBINE TARTRATE
     Indication: HODGKIN^S DISEASE
     Dosage: THIRD CHEMOTHERAPY CYCLE.?AT 50% OF THE STANDARD DOSAGE
  2. PREDNISONE. [Suspect]
     Active Substance: PREDNISONE
     Indication: HODGKIN^S DISEASE
     Dosage: COPP/ABV REGIMEN.?50 MG/DAY FOR 14 DAYS.?CYCLIC
  3. PROCARBAZINE [Suspect]
     Active Substance: PROCARBAZINE
     Indication: HODGKIN^S DISEASE
     Dosage: COPP/ABV REGIMEN.?100 MG/DAY ALTERNATING WITH 150 MG/DAY FOR A TOTAL OF 7 DAYS.?CYCLIC
  4. DOXORUBICIN [Suspect]
     Active Substance: DOXORUBICIN
     Indication: HODGKIN^S DISEASE
     Dosage: COPP/ABV REGIMEN.?DAY 7.
  5. GEMCITABINE/GEMCITABINE HYDROCHLORIDE [Suspect]
     Active Substance: GEMCITABINE\GEMCITABINE HYDROCHLORIDE
     Indication: HODGKIN^S DISEASE
     Dosage: THIRD CHEMOTHERAPY CYCLE
  6. VINBLASTINE [Suspect]
     Active Substance: VINBLASTINE
     Indication: HODGKIN^S DISEASE
     Dosage: COPP/ABV REGIMEN.?DAY 7.
  7. VINCRISTINE [Suspect]
     Active Substance: VINCRISTINE
     Indication: HODGKIN^S DISEASE
     Dosage: COPP/ABV REGIMEN.?DAY 1.
  8. CYCLOPHOSPHAMIDE/CYCLOPHOSPHAMIDE MONOHYDRATE [Suspect]
     Active Substance: CYCLOPHOSPHAMIDE
     Indication: HODGKIN^S DISEASE
     Dosage: COPP/ABV REGIMEN.?DAY 1.
  9. BLEOMYCIN [Suspect]
     Active Substance: BLEOMYCIN SULFATE
     Indication: HODGKIN^S DISEASE
     Dosage: COPP/ABV REGIMEN.?DAY 7
  10. CICLOSPORIN [Concomitant]
     Active Substance: CYCLOSPORINE
     Indication: IMMUNOSUPPRESSANT DRUG THERAPY
  11. EVEROLIMUS [Concomitant]
     Active Substance: EVEROLIMUS

REACTIONS (7)
  - Pleural effusion [Recovered/Resolved]
  - Left atrial dilatation [Recovered/Resolved]
  - Off label use [Unknown]
  - Renal impairment [Unknown]
  - Hypertension [Unknown]
  - Systolic dysfunction [None]
  - Toxicity to various agents [None]
